FAERS Safety Report 11995981 (Version 2)
Quarter: 2019Q3

REPORT INFORMATION
  Report Type: Spontaneous
  Country: US (occurrence: US)
  Receive Date: 20160203
  Receipt Date: 20190806
  Transmission Date: 20191004
  Serious: No
  Sender: FDA-Public Use
  Company Number: US-ASTRAZENECA-2016SE08497

PATIENT
  Age: 14093 Day
  Sex: Female

DRUGS (1)
  1. ZOMIG [Suspect]
     Active Substance: ZOLMITRIPTAN
     Indication: MIGRAINE
     Dosage: 5 MG,1 SPRAY IN ONE NOSTRIL AT ONSET OF HEADACHE DAILY PRN
     Route: 045

REACTIONS (3)
  - Sinusitis [Unknown]
  - Migraine [Unknown]
  - Product dose omission [Unknown]

NARRATIVE: CASE EVENT DATE: 201512
